FAERS Safety Report 6219321-5 (Version None)
Quarter: 2009Q2

REPORT INFORMATION
  Report Type: 
  Country: None (occurrence: None)
  Receive Date: 20090609
  Receipt Date: 20090601
  Transmission Date: 20091009
  Serious: Yes (Other)
  Sender: FDA-Public Use
  Company Number: RU-ASTRAZENECA-2009SE02174

PATIENT
  Age: 18 Year

DRUGS (1)
  1. MERONEM [Suspect]
     Indication: PNEUMONIA
     Route: 042

REACTIONS (1)
  - CONVULSION [None]
